FAERS Safety Report 9003804 (Version 1)
Quarter: 2013Q1

REPORT INFORMATION
  Report Type: Spontaneous
  Country: US (occurrence: US)
  Receive Date: 20130108
  Receipt Date: 20130108
  Transmission Date: 20140127
  Serious: No
  Sender: FDA-Public Use
  Company Number: US-GLAXOSMITHKLINE-A0982313A

PATIENT
  Age: 70 Year
  Sex: Male

DRUGS (15)
  1. LOVAZA [Suspect]
     Indication: BLOOD TRIGLYCERIDES INCREASED
     Dosage: 2CAP TWICE PER DAY
     Route: 048
  2. LISINOPRIL [Concomitant]
  3. SYNTHROID [Concomitant]
  4. TAMSULOSIN [Concomitant]
  5. FINASTERIDE [Concomitant]
  6. METFORMIN [Concomitant]
  7. SERTRALINE [Concomitant]
  8. JANUVIA [Concomitant]
  9. ALLOPURINOL [Concomitant]
  10. UNKNOWN MEDICATION [Concomitant]
  11. GEMFIBROZIL [Concomitant]
  12. UNKNOWN MEDICATION [Concomitant]
  13. VERAPAMIL [Concomitant]
  14. ALPRAZOLAM [Concomitant]
  15. ASPIRIN [Concomitant]

REACTIONS (2)
  - Medication residue present [Unknown]
  - Drug ineffective [Unknown]
